FAERS Safety Report 25253427 (Version 1)
Quarter: 2025Q2

REPORT INFORMATION
  Report Type: Spontaneous
  Country: US (occurrence: US)
  Receive Date: 20250430
  Receipt Date: 20250430
  Transmission Date: 20250716
  Serious: Yes (Other)
  Sender: COOPERSURGICAL
  Company Number: US-COOPERSURGICAL, INC.-2025CPS003219

PATIENT
  Age: 32 Year
  Sex: Female
  Weight: 48.073 kg

DRUGS (7)
  1. PARAGARD T 380A [Suspect]
     Active Substance: COPPER
     Route: 015
     Dates: start: 20100101
  2. BUPROPION [Concomitant]
     Active Substance: BUPROPION
     Dates: start: 201609, end: 2018
  3. GABAPENTIN [Concomitant]
     Active Substance: GABAPENTIN
     Dates: start: 201609, end: 2018
  4. CITALOPRAM [Concomitant]
     Active Substance: CITALOPRAM
     Dates: start: 201504, end: 2018
  5. QUETIAPINE [Concomitant]
     Active Substance: QUETIAPINE
     Dates: start: 201504, end: 2018
  6. METRONIDAZOLE [Concomitant]
     Active Substance: METRONIDAZOLE
     Dates: start: 201601, end: 2018
  7. PROPRANOLOL [Concomitant]
     Active Substance: PROPRANOLOL HYDROCHLORIDE
     Dates: start: 201503, end: 2018

REACTIONS (5)
  - Reproductive complication associated with device [Unknown]
  - Uterine leiomyoma [Unknown]
  - Device breakage [Recovered/Resolved]
  - Foreign body in reproductive tract [Recovered/Resolved]
  - Complication of device removal [Recovered/Resolved]

NARRATIVE: CASE EVENT DATE: 20160901
